FAERS Safety Report 8569045-4 (Version None)
Quarter: 2012Q3

REPORT INFORMATION
  Report Type: 
  Country: None (occurrence: None)
  Receive Date: 20120803
  Receipt Date: 20120216
  Transmission Date: 20120928
  Serious: No
  Sender: FDA-Public Use
  Company Number: US-ABBOTT-12P-163-0905189-00

PATIENT
  Sex: Male
  Weight: 81.72 kg

DRUGS (1)
  1. NIASPAN [Suspect]
     Indication: BLOOD CHOLESTEROL ABNORMAL
     Dosage: 1 IN 1 D, AT BEDTIME
     Dates: start: 20120101

REACTIONS (4)
  - PARAESTHESIA [None]
  - FLUSHING [None]
  - FEELING HOT [None]
  - PRURITUS [None]
